FAERS Safety Report 4469487-2 (Version None)
Quarter: 2004Q4

REPORT INFORMATION
  Report Type: 
  Country: None (occurrence: None)
  Receive Date: 20041005
  Receipt Date: 20041005
  Transmission Date: 20050328
  Serious: No
  Sender: FDA-Public Use
  Company Number: None

PATIENT
  Age: 77 Year
  Sex: Female
  Weight: 58.0604 kg

DRUGS (1)
  1. VIOXX [Suspect]
     Indication: ARTHRITIS
     Dosage: 1 DAILY ORAL
     Route: 048
     Dates: start: 20020101, end: 20040929

REACTIONS (3)
  - DIPLOPIA [None]
  - DISORDER OF GLOBE [None]
  - THROMBOSIS [None]
